FAERS Safety Report 5723217-2 (Version None)
Quarter: 2008Q2

REPORT INFORMATION
  Report Type: 
  Country: None (occurrence: None)
  Receive Date: 20080425
  Receipt Date: 20080411
  Transmission Date: 20081010
  Serious: Yes (Disabling)
  Sender: FDA-Public Use
  Company Number: 8031918

PATIENT
  Age: 63 Year
  Sex: Female

DRUGS (3)
  1. KEPPRA [Suspect]
     Dosage: 750 MG 2/D PO
     Route: 048
  2. KEPPRA [Suspect]
     Dosage: 1000 MG 2/D PO
     Route: 048
  3. CHEMOTHERAPY [Concomitant]

REACTIONS (1)
  - TOXIC SKIN ERUPTION [None]
